FAERS Safety Report 4508662-5 (Version None)
Quarter: 2004Q4

REPORT INFORMATION
  Report Type: 
  Country: None (occurrence: None)
  Receive Date: 20041118
  Receipt Date: 20041102
  Transmission Date: 20050328
  Serious: Yes (Other)
  Sender: FDA-Public Use
  Company Number: 1999-BP-01222

PATIENT
  Sex: Female

DRUGS (1)
  1. VIRAMUNE [Suspect]
     Indication: PROPHYLAXIS AGAINST HIV INFECTION
     Dosage: NR (NR, SINGLE DOSE), IU
     Route: 015
     Dates: start: 19981226, end: 19981226

REACTIONS (6)
  - DRUG EXPOSURE DURING PREGNANCY [None]
  - HEADACHE [None]
  - MALARIA [None]
  - POSTPARTUM SEPSIS [None]
  - PYREXIA [None]
  - STILLBIRTH [None]
